FAERS Safety Report 16151895 (Version 1)
Quarter: 2019Q2

REPORT INFORMATION
  Report Type: Spontaneous
  Country: US (occurrence: US)
  Receive Date: 20190403
  Receipt Date: 20190403
  Transmission Date: 20190711
  Serious: Yes (Other)
  Sender: FDA-Public Use
  Company Number: US-UPSHER-SMITH LABORATORIES, LLC-2019USL00042

PATIENT
  Sex: Female

DRUGS (2)
  1. VIGADRONE [Suspect]
     Active Substance: VIGABATRIN
     Dosage: UNK
     Dates: start: 2019
  2. VIGADRONE [Suspect]
     Active Substance: VIGABATRIN
     Dosage: UNK
     Dates: start: 20190116, end: 2019

REACTIONS (4)
  - Muscle twitching [Not Recovered/Not Resolved]
  - Irritability [Not Recovered/Not Resolved]
  - Hypotonia [Not Recovered/Not Resolved]
  - Insomnia [Not Recovered/Not Resolved]

NARRATIVE: CASE EVENT DATE: 2019
